FAERS Safety Report 10354314 (Version 1)
Quarter: 2014Q3

REPORT INFORMATION
  Report Type: Spontaneous
  Country: IN (occurrence: IN)
  Receive Date: 20140731
  Receipt Date: 20140731
  Transmission Date: 20150326
  Serious: Yes (Death, Other)
  Sender: FDA-Public Use
  Company Number: IN-ASTRAZENECA-2014SE55313

PATIENT
  Age: 30 Year
  Sex: Female

DRUGS (3)
  1. ANAESTHETICS [Concomitant]
     Active Substance: UNSPECIFIED INGREDIENT
     Indication: GENERAL ANAESTHESIA
  2. TRANEXAMIC ACID. [Suspect]
     Active Substance: TRANEXAMIC ACID
     Route: 037
  3. BUPIVACAINE [Suspect]
     Active Substance: BUPIVACAINE
     Indication: SPINAL ANAESTHESIA
     Route: 037

REACTIONS (5)
  - Wrong drug administered [Fatal]
  - Myoclonus [Recovering/Resolving]
  - Ventricular fibrillation [Fatal]
  - Injection site pain [Unknown]
  - Generalised tonic-clonic seizure [Recovering/Resolving]
